FAERS Safety Report 8115107-5 (Version None)
Quarter: 2012Q1

REPORT INFORMATION
  Report Type: 
  Country: None (occurrence: None)
  Receive Date: 20120206
  Receipt Date: 20120203
  Transmission Date: 20120608
  Serious: Yes (Hospitalization, Other)
  Sender: FDA-Public Use
  Company Number: GR-JNJFOC-20120110921

PATIENT
  Sex: Female

DRUGS (3)
  1. DOXORUBICIN HCL [Suspect]
     Indication: OVARIAN CANCER
     Dosage: CYCLE 1
     Route: 042
  2. CARBOPLATIN [Concomitant]
     Indication: OVARIAN CANCER
     Route: 065
  3. DOXORUBICIN HCL [Suspect]
     Dosage: CYCLE 2
     Route: 042
     Dates: start: 20120117

REACTIONS (3)
  - PRODUCT CONTAMINATION [None]
  - PYREXIA [None]
  - PRODUCT QUALITY ISSUE [None]
